FAERS Safety Report 10985708 (Version 1)
Quarter: 2015Q2

REPORT INFORMATION
  Report Type: Spontaneous
  Country: US (occurrence: US)
  Receive Date: 20150404
  Receipt Date: 20150404
  Transmission Date: 20150821
  Serious: No
  Sender: FDA-Public Use
  Company Number: US-SA-2014SA043506

PATIENT
  Age: 55 Year
  Sex: Male

DRUGS (1)
  1. ALLEGRA-D [Suspect]
     Active Substance: FEXOFENADINE\PSEUDOEPHEDRINE
     Indication: NASAL CONGESTION
     Dosage: 1 PILL A DAY
     Route: 048

REACTIONS (4)
  - Sleep apnoea syndrome [Not Recovered/Not Resolved]
  - Medication residue present [Unknown]
  - Heart rate irregular [Not Recovered/Not Resolved]
  - Wrong technique in drug usage process [Unknown]
